FAERS Safety Report 7591105-5 (Version None)
Quarter: 2011Q3

REPORT INFORMATION
  Report Type: 
  Country: None (occurrence: None)
  Receive Date: 20110705
  Receipt Date: 20110701
  Transmission Date: 20111222
  Serious: Yes (Death)
  Sender: FDA-Public Use
  Company Number: BR-ASTRAZENECA-2011SE39571

PATIENT
  Age: 99 Year
  Sex: Male

DRUGS (1)
  1. CASODEX [Suspect]
     Route: 048

REACTIONS (3)
  - URINARY TRACT INFECTION [None]
  - PNEUMONIA [None]
  - DEATH [None]
